FAERS Safety Report 23495017 (Version 2)
Quarter: 2024Q1

REPORT INFORMATION
  Report Type: Spontaneous
  Country: US (occurrence: US)
  Receive Date: 20240207
  Receipt Date: 20240308
  Transmission Date: 20240410
  Serious: No
  Sender: FDA-Public Use
  Company Number: US-ELI_LILLY_AND_COMPANY-US202402002932

PATIENT
  Age: 42 Year
  Sex: Female
  Weight: 122 kg

DRUGS (5)
  1. ZEPBOUND [Suspect]
     Active Substance: TIRZEPATIDE
     Indication: Obesity
     Dosage: 2.5 MG, WEEKLY (1/W)
     Route: 058
     Dates: start: 20240123
  2. ZEPBOUND [Suspect]
     Active Substance: TIRZEPATIDE
     Indication: Obesity
     Dosage: 2.5 MG, WEEKLY (1/W)
     Route: 058
     Dates: start: 20240123
  3. ZEPBOUND [Suspect]
     Active Substance: TIRZEPATIDE
     Indication: Obesity
     Dosage: 2.5 MG, WEEKLY (1/W)
     Route: 058
     Dates: start: 20240123
  4. ZEPBOUND [Suspect]
     Active Substance: TIRZEPATIDE
     Indication: Obesity
     Dosage: 2.5 MG, WEEKLY (1/W)
     Route: 058
     Dates: start: 20240123
  5. ALBUTEROL SULFATE [Concomitant]
     Active Substance: ALBUTEROL SULFATE
     Indication: Product used for unknown indication

REACTIONS (7)
  - Hypersensitivity [Not Recovered/Not Resolved]
  - Injection site pruritus [Not Recovered/Not Resolved]
  - Injection site urticaria [Not Recovered/Not Resolved]
  - Injection site bruising [Not Recovered/Not Resolved]
  - Injection site swelling [Not Recovered/Not Resolved]
  - Injection site warmth [Not Recovered/Not Resolved]
  - Injection site erythema [Not Recovered/Not Resolved]

NARRATIVE: CASE EVENT DATE: 20240129
